FAERS Safety Report 23043971 (Version 1)
Quarter: 2023Q4

REPORT INFORMATION
  Report Type: Spontaneous
  Country: US (occurrence: US)
  Receive Date: 20231009
  Receipt Date: 20231009
  Transmission Date: 20240110
  Serious: No
  Sender: FDA-Public Use
  Company Number: US-HORIZON THERAPEUTICS-HZN-2021-008930

PATIENT

DRUGS (4)
  1. KRYSTEXXA [Suspect]
     Active Substance: PEGLOTICASE
     Indication: Gout
     Dosage: UNK (1ST INFUSION)
     Route: 065
     Dates: start: 202110
  2. KRYSTEXXA [Suspect]
     Active Substance: PEGLOTICASE
     Dosage: UNK (2ND INFUSION)
     Route: 065
  3. KRYSTEXXA [Suspect]
     Active Substance: PEGLOTICASE
     Dosage: UNK (3RD INFUSION)
     Route: 065
  4. METHOTREXATE [Concomitant]
     Active Substance: METHOTREXATE
     Indication: Product used for unknown indication

REACTIONS (1)
  - Pain in extremity [Not Recovered/Not Resolved]
